FAERS Safety Report 26146377 (Version 1)
Quarter: 2025Q4

REPORT INFORMATION
  Report Type: Spontaneous
  Country: EU (occurrence: EU)
  Receive Date: 20251211
  Receipt Date: 20251211
  Transmission Date: 20260118
  Serious: Yes (Life-Threatening, Congenital Anomaly)
  Sender: TEVA
  Company Number: EU-EMB-M202407323-1

PATIENT

DRUGS (3)
  1. AZITHROMYCIN [Suspect]
     Active Substance: AZITHROMYCIN
     Indication: Bacterial vulvovaginitis
     Route: 064
     Dates: start: 202406, end: 202406
  2. DOXYLAMINE SUCCINATE [Suspect]
     Active Substance: DOXYLAMINE SUCCINATE
     Indication: Morning sickness
     Route: 064
     Dates: start: 202406, end: 202408
  3. CLINDAMYCIN [Suspect]
     Active Substance: CLINDAMYCIN
     Indication: Chlamydial infection
     Route: 064
     Dates: start: 202406, end: 202406

REACTIONS (4)
  - Ventricular septal defect [Not Recovered/Not Resolved]
  - Hypoplastic right heart syndrome [Not Recovered/Not Resolved]
  - Double outlet left ventricle [Not Recovered/Not Resolved]
  - Foetal exposure during pregnancy [Unknown]
